FAERS Safety Report 19744046 (Version 2)
Quarter: 2021Q3

REPORT INFORMATION
  Report Type: Spontaneous
  Country: US (occurrence: US)
  Receive Date: 20210825
  Receipt Date: 20210917
  Transmission Date: 20211014
  Serious: No
  Sender: FDA-Public Use
  Company Number: US-GLAXOSMITHKLINE-US2021176020

PATIENT
  Age: 71 Year
  Sex: Female

DRUGS (1)
  1. NUCALA [Suspect]
     Active Substance: MEPOLIZUMAB
     Indication: DYSPNOEA
     Dosage: 100 MG/ML
     Route: 042
     Dates: start: 20210820

REACTIONS (9)
  - Injection site swelling [Unknown]
  - Injection site warmth [Unknown]
  - Accidental exposure to product [Unknown]
  - Product complaint [Unknown]
  - Injection site erythema [Unknown]
  - Device malfunction [Recovered/Resolved]
  - Exposure via skin contact [Unknown]
  - Off label use [Unknown]
  - Underdose [Unknown]

NARRATIVE: CASE EVENT DATE: 20210820
